FAERS Safety Report 8932355 (Version 1)
Quarter: 2012Q4

REPORT INFORMATION
  Report Type: 
  Country: US (occurrence: US)
  Receive Date: 20121128
  Receipt Date: 20121128
  Transmission Date: 20130627
  Serious: Yes (Other)
  Sender: FDA-Public Use
  Company Number: US-JNJFOC-20121111216

PATIENT
  Age: 13 None
  Sex: Male
  Weight: 34.02 kg

DRUGS (9)
  1. BENADRYL [Suspect]
     Indication: DRUG HYPERSENSITIVITY
     Route: 065
  2. BENADRYL [Suspect]
     Indication: ABDOMINAL PAIN UPPER
     Route: 065
  3. HUMIRA [Suspect]
     Indication: CROHN^S DISEASE
     Dosage: 1 dose in 2 weeks, 14 to 15 months ago
     Route: 065
     Dates: start: 2011
  4. PREDNISONE [Suspect]
     Indication: CROHN^S DISEASE
     Route: 065
  5. ENTOCORT ENEMA [Concomitant]
     Indication: CROHN^S DISEASE
     Route: 065
  6. NUTROPIN [Concomitant]
     Indication: BLOOD GROWTH HORMONE
     Route: 065
  7. CLARITIN [Concomitant]
     Indication: MULTIPLE ALLERGIES
     Route: 065
  8. FLUNASE [Concomitant]
     Indication: MULTIPLE ALLERGIES
     Route: 065
  9. UNKNOWN MEDICATION [Concomitant]
     Indication: MULTIPLE ALLERGIES
     Route: 065

REACTIONS (8)
  - Adrenal disorder [Unknown]
  - Hypersensitivity [Recovered/Resolved]
  - Pain [Recovered/Resolved]
  - Malaise [Recovered/Resolved]
  - Disorientation [Recovered/Resolved]
  - Off label use [Unknown]
  - Adverse reaction [None]
  - Abdominal pain upper [None]
